FAERS Safety Report 15246746 (Version 3)
Quarter: 2019Q1

REPORT INFORMATION
  Report Type: Report from Study
  Country: None (occurrence: US)
  Receive Date: 20180806
  Receipt Date: 20190102
  Transmission Date: 20190417
  Serious: Yes (Other)
  Sender: FDA-Public Use
  Company Number: US-ABBVIE-18K-163-2442533-00

PATIENT
  Age: 58 Year
  Sex: Male
  Weight: 77.18 kg

DRUGS (3)
  1. HUMIRA [Suspect]
     Active Substance: ADALIMUMAB
     Indication: PSORIASIS
     Route: 058
     Dates: start: 201801
  2. FLONASE [Concomitant]
     Active Substance: FLUTICASONE PROPIONATE
     Indication: HYPERSENSITIVITY
  3. ATORVASTATIN [Concomitant]
     Active Substance: ATORVASTATIN
     Indication: BLOOD CHOLESTEROL

REACTIONS (7)
  - Ocular hyperaemia [Recovering/Resolving]
  - Post procedural complication [Unknown]
  - Drug effect decreased [Not Recovered/Not Resolved]
  - Dry skin [Unknown]
  - Psoriasis [Recovering/Resolving]
  - Retinal detachment [Recovering/Resolving]
  - Skin induration [Unknown]

NARRATIVE: CASE EVENT DATE: 2018
